FAERS Safety Report 4897353-7 (Version None)
Quarter: 2005Q4

REPORT INFORMATION
  Report Type: 
  Country: None (occurrence: None)
  Receive Date: 20051223
  Receipt Date: 20051111
  Transmission Date: 20060501
  Serious: No
  Sender: FDA-Public Use
  Company Number: 05P-163-0316990-00

PATIENT
  Age: 35 Year
  Sex: Male
  Weight: 86.1834 kg

DRUGS (2)
  1. HUMIRA [Suspect]
     Indication: PSORIATIC ARTHROPATHY
     Dosage: 40 MG, 1 IN 2 WK, SUBCUTANEOUS
     Route: 058
     Dates: start: 20051111
  2. LEFLUNOMIDE [Concomitant]

REACTIONS (1)
  - INJECTION SITE IRRITATION [None]
